FAERS Safety Report 25498840 (Version 2)
Quarter: 2025Q3

REPORT INFORMATION
  Report Type: Report from Study
  Country: US (occurrence: US)
  Receive Date: 20250701
  Receipt Date: 20250714
  Transmission Date: 20251020
  Serious: Yes (Hospitalization, Other)
  Sender: TAKEDA
  Company Number: US-TAKEDA-2025TUS057678

PATIENT
  Sex: Female

DRUGS (1)
  1. VEDOLIZUMAB [Suspect]
     Active Substance: VEDOLIZUMAB
     Indication: Colitis ulcerative

REACTIONS (10)
  - Crohn^s disease [Unknown]
  - Urinary tract infection [Unknown]
  - Pneumonia [Unknown]
  - Weight increased [Unknown]
  - Myofascial pain syndrome [Unknown]
  - Incisional hernia [Unknown]
  - Arthritis [Unknown]
  - Product dose omission issue [Unknown]
  - Night sweats [Unknown]
  - Fatigue [Unknown]
